FAERS Safety Report 15287712 (Version 1)
Quarter: 2018Q3

REPORT INFORMATION
  Report Type: Spontaneous
  Country: US (occurrence: US)
  Receive Date: 20180817
  Receipt Date: 20180817
  Transmission Date: 20181010
  Serious: Yes (Death)
  Sender: FDA-Public Use
  Company Number: US-JNJFOC-20180816412

PATIENT
  Age: 1 Day
  Sex: Female

DRUGS (2)
  1. ACETAMINOPHEN. [Suspect]
     Active Substance: ACETAMINOPHEN
     Indication: PRODUCT USED FOR UNKNOWN INDICATION
     Route: 050
  2. ACETAMINOPHEN. [Suspect]
     Active Substance: ACETAMINOPHEN
     Route: 050

REACTIONS (10)
  - Premature baby [Fatal]
  - Foetal exposure during pregnancy [Fatal]
  - Toxicity to various agents [Fatal]
  - Alanine aminotransferase decreased [Fatal]
  - Foetal distress syndrome [Fatal]
  - Blood lactic acid increased [Fatal]
  - CSF white blood cell count increased [Fatal]
  - Aspartate aminotransferase decreased [Fatal]
  - Neonatal respiratory distress [Fatal]
  - Blood alkaline phosphatase decreased [Fatal]
